FAERS Safety Report 4727887-7 (Version None)
Quarter: 2005Q3

REPORT INFORMATION
  Report Type: 
  Country: None (occurrence: None)
  Receive Date: 20050728
  Receipt Date: 20050512
  Transmission Date: 20060218
  Serious: Yes (Life-Threatening, Hospitalization, Other)
  Sender: FDA-Public Use
  Company Number: US-MERCK-0505USA01689

PATIENT
  Age: 66 Year
  Sex: Female
  Weight: 63 kg

DRUGS (7)
  1. VYTORIN [Suspect]
     Indication: HYPERLIPIDAEMIA
     Route: 048
     Dates: start: 20050429, end: 20050506
  2. GEODON [Concomitant]
     Indication: BIPOLAR DISORDER
     Route: 048
  3. ARMOUR THYROID TABLETS [Concomitant]
     Indication: HYPOTHYROIDISM
     Route: 048
  4. AMBIEN [Concomitant]
     Indication: INSOMNIA
     Route: 048
  5. IMITREX [Concomitant]
     Indication: HEADACHE
     Route: 048
  6. ZOMIG [Concomitant]
     Indication: HEADACHE
     Route: 065
  7. LAMICTAL [Concomitant]
     Indication: BIPOLAR DISORDER
     Route: 048

REACTIONS (3)
  - RHABDOMYOLYSIS [None]
  - URINARY TRACT INFECTION [None]
  - WRONG TECHNIQUE IN DRUG USAGE PROCESS [None]
